FAERS Safety Report 10907270 (Version 1)
Quarter: 2015Q1

REPORT INFORMATION
  Report Type: Report from Study
  Country: US (occurrence: US)
  Receive Date: 20150312
  Receipt Date: 20150312
  Transmission Date: 20150721
  Serious: Yes (Hospitalization, Other)
  Sender: FDA-Public Use
  Company Number: US-BAYER-2015-001017

PATIENT
  Age: 80 Year
  Sex: Female

DRUGS (9)
  1. LEVOTHYROXINE [Concomitant]
     Active Substance: LEVOTHYROXINE
     Dosage: DAILY DOSE 100 ?G
  2. REGLAN [Concomitant]
     Active Substance: METOCLOPRAMIDE HYDROCHLORIDE
     Dosage: 10 MG, TID
     Route: 048
  3. STIVARGA [Suspect]
     Active Substance: REGORAFENIB
     Indication: COLON CANCER
     Dosage: DAILY DOSE 160 MG
     Route: 048
     Dates: start: 20141226, end: 201501
  4. ATENOLOL. [Concomitant]
     Active Substance: ATENOLOL
     Dosage: DAILY DOSE 50 MG
  5. WARFARIN [Concomitant]
     Active Substance: WARFARIN
  6. LYRICA [Concomitant]
     Active Substance: PREGABALIN
     Dosage: 75 MG, BID
  7. TIMOLOL [Concomitant]
     Active Substance: TIMOLOL
  8. COUMADIN [Concomitant]
     Active Substance: WARFARIN SODIUM
     Indication: PULMONARY EMBOLISM
     Dosage: 2 MG ALTERNATING WITH 3 MG
  9. ATIVAN [Concomitant]
     Active Substance: LORAZEPAM

REACTIONS (20)
  - Pyrexia [Recovering/Resolving]
  - Dry mouth [None]
  - Blood urine present [Recovered/Resolved]
  - Back pain [Recovering/Resolving]
  - Constipation [None]
  - Rash [Recovering/Resolving]
  - Fatigue [Recovering/Resolving]
  - Cholelithiasis [None]
  - Anaemia [None]
  - Platelet count decreased [Recovering/Resolving]
  - Oral pain [None]
  - Headache [Recovering/Resolving]
  - Systemic inflammatory response syndrome [Recovering/Resolving]
  - Sepsis [Recovering/Resolving]
  - Blood bilirubin increased [None]
  - Musculoskeletal pain [Recovered/Resolved]
  - Nausea [Recovering/Resolving]
  - Weight decreased [Recovering/Resolving]
  - Blood pressure increased [Not Recovered/Not Resolved]
  - Sinusitis [None]

NARRATIVE: CASE EVENT DATE: 20141230
